FAERS Safety Report 13069897 (Version 1)
Quarter: 2016Q4

REPORT INFORMATION
  Report Type: Other
  Country: US (occurrence: US)
  Receive Date: 20161228
  Receipt Date: 20161228
  Transmission Date: 20170207
  Serious: Yes (Hospitalization)
  Sender: FDA-Public Use
  Company Number: US-SHIRE-US201618316

PATIENT
  Age: 60 Year
  Sex: Female

DRUGS (2)
  1. NATPARA (PARATHYROID HORMONE) [Suspect]
     Active Substance: PARATHYROID HORMONE
     Indication: HYPOPARATHYROIDISM
     Dosage: 100 ?G, 1X/DAY:QD
     Route: 058
     Dates: start: 20160711
  2. NATPARA (PARATHYROID HORMONE) [Suspect]
     Active Substance: PARATHYROID HORMONE
     Indication: HYPOPARATHYROIDISM

REACTIONS (14)
  - Palpitations [Recovered/Resolved]
  - Joint dislocation [Not Recovered/Not Resolved]
  - Neurological symptom [Unknown]
  - Hypocalcaemia [Not Recovered/Not Resolved]
  - Tetany [Recovered/Resolved]
  - Malaise [Not Recovered/Not Resolved]
  - Dysphemia [Not Recovered/Not Resolved]
  - Underdose [Recovered/Resolved]
  - Product use issue [Recovered/Resolved]
  - Injection site haemorrhage [Unknown]
  - Device leakage [Unknown]
  - Gait disturbance [Not Recovered/Not Resolved]
  - Stress [Unknown]
  - Migraine [Unknown]

NARRATIVE: CASE EVENT DATE: 20161128
